FAERS Safety Report 7042323-6 (Version None)
Quarter: 2010Q4

REPORT INFORMATION
  Report Type: 
  Country: None (occurrence: None)
  Receive Date: 20101013
  Receipt Date: 20100315
  Transmission Date: 20110411
  Serious: No
  Sender: FDA-Public Use
  Company Number: US-ASTRAZENECA-2010SE11074

PATIENT
  Sex: Male
  Weight: 54.9 kg

DRUGS (6)
  1. SYMBICORT [Suspect]
     Dosage: TOTAL DAILY DOSE 640 MICROGRAM
     Route: 055
     Dates: start: 20100201
  2. XANAX [Concomitant]
  3. CARVEDILOL [Concomitant]
  4. COZAAR [Concomitant]
  5. METANX [Concomitant]
  6. ALBUTEROL [Concomitant]

REACTIONS (1)
  - MUSCULAR WEAKNESS [None]
